FAERS Safety Report 9437108 (Version 1)
Quarter: 2013Q3

REPORT INFORMATION
  Report Type: Spontaneous
  Country: US (occurrence: US)
  Receive Date: 20130802
  Receipt Date: 20130802
  Transmission Date: 20140515
  Serious: Yes (Other)
  Sender: FDA-Public Use
  Company Number: US-JNJFOC-20130513328

PATIENT
  Age: 52 Year
  Sex: Male

DRUGS (5)
  1. INFLIXIMAB [Suspect]
     Indication: COLITIS
     Route: 042
  2. IPILIMUMAB [Suspect]
     Indication: PROSTATE CANCER
     Route: 042
  3. PREDNISONE [Concomitant]
     Indication: DIARRHOEA
     Route: 065
  4. PREDNISONE [Concomitant]
     Indication: DIARRHOEA
     Route: 065
  5. GLUCOCORTICOIDS [Concomitant]
     Indication: DIARRHOEA
     Route: 065

REACTIONS (3)
  - Diarrhoea [Not Recovered/Not Resolved]
  - Condition aggravated [Not Recovered/Not Resolved]
  - Drug ineffective for unapproved indication [Unknown]
